FAERS Safety Report 5270248-5 (Version None)
Quarter: 2007Q1

REPORT INFORMATION
  Report Type: 
  Country: None (occurrence: None)
  Receive Date: 20070320
  Receipt Date: 20070308
  Transmission Date: 20070707
  Serious: Yes (Other)
  Sender: FDA-Public Use
  Company Number: JP-PFIZER INC-2007018303

PATIENT
  Age: 60 Year
  Sex: Male

DRUGS (1)
  1. SULPERAZON [Suspect]
     Indication: PNEUMONIA
     Dosage: DAILY DOSE:1GRAM
     Route: 042
     Dates: start: 20070227, end: 20070227

REACTIONS (2)
  - RESPIRATORY FAILURE [None]
  - SHOCK [None]
